FAERS Safety Report 8933569 (Version 1)
Quarter: 2012Q4

REPORT INFORMATION
  Report Type: 
  Country: US (occurrence: US)
  Receive Date: 20121129
  Receipt Date: 20121129
  Transmission Date: 20130627
  Serious: Yes (Other)
  Sender: FDA-Public Use
  Company Number: US-ASTRAZENECA-2012SE29620

PATIENT
  Age: 44 Year
  Sex: Female
  Weight: 95.7 kg

DRUGS (9)
  1. SEROQUEL XR [Suspect]
     Indication: BIPOLAR DISORDER
     Route: 048
     Dates: start: 2002, end: 2002
  2. SEROQUEL XR [Suspect]
     Indication: DEPRESSION
     Route: 048
     Dates: start: 2002, end: 2002
  3. SEROQUEL XR [Suspect]
     Indication: SCHIZOPHRENIA
     Route: 048
     Dates: start: 2002, end: 2002
  4. SEROQUEL XR [Suspect]
     Indication: BIPOLAR DISORDER
     Route: 048
     Dates: start: 2012, end: 2012
  5. SEROQUEL XR [Suspect]
     Indication: DEPRESSION
     Route: 048
     Dates: start: 2012, end: 2012
  6. SEROQUEL XR [Suspect]
     Indication: SCHIZOPHRENIA
     Route: 048
     Dates: start: 2012, end: 2012
  7. INVEGA [Concomitant]
  8. XANAX [Concomitant]
  9. ZYPREXIA [Concomitant]

REACTIONS (10)
  - Dyskinesia [Recovered/Resolved]
  - Nasal congestion [Unknown]
  - Initial insomnia [Unknown]
  - Hallucination, auditory [Unknown]
  - Drug level decreased [Unknown]
  - Agoraphobia [Unknown]
  - Fatigue [Unknown]
  - Somnolence [Recovered/Resolved]
  - Weight increased [Unknown]
  - Muscle spasms [Unknown]
